FAERS Safety Report 10250850 (Version 2)
Quarter: 2014Q3

REPORT INFORMATION
  Report Type: Spontaneous
  Country: US (occurrence: US)
  Receive Date: 20140620
  Receipt Date: 20140808
  Transmission Date: 20150326
  Serious: Yes (Death, Hospitalization, Other)
  Sender: FDA-Public Use
  Company Number: US-AMGEN INC.-USASP2014045349

PATIENT
  Age: 89 Year
  Sex: Female
  Weight: 47.62 kg

DRUGS (16)
  1. NORVASC [Concomitant]
     Active Substance: AMLODIPINE BESYLATE
     Dosage: 2.5 MG, QD
     Route: 048
  2. ASPIRIN                            /00002701/ [Concomitant]
     Active Substance: ASPIRIN
     Dosage: 81 MG, QD
     Route: 048
  3. CLOPIDOGREL BISULFATE. [Concomitant]
     Active Substance: CLOPIDOGREL BISULFATE
     Dosage: 600 MG, ONE TIME DOSE
     Route: 048
     Dates: start: 20140310, end: 20140310
  4. HEPARIN SODIUM. [Concomitant]
     Active Substance: HEPARIN SODIUM
     Dosage: 5000 UNIT, ONE TIME DOSE
     Route: 042
     Dates: start: 20140310, end: 20140310
  5. TENECTEPLASE [Concomitant]
     Active Substance: TENECTEPLASE
     Dosage: 30 MG, ONE TIME DOSE
     Route: 042
     Dates: start: 20140310, end: 20140310
  6. TRAMADOL HCL [Concomitant]
     Active Substance: TRAMADOL HYDROCHLORIDE
     Dosage: UNK, EVERY 6-8 HOUR
  7. PRAVACHOL [Concomitant]
     Active Substance: PRAVASTATIN SODIUM
     Dosage: 40 MG, QD
     Route: 048
  8. CALCIUM CARBONATE. [Concomitant]
     Active Substance: CALCIUM CARBONATE
     Dosage: UNK UNK, QD, 500
     Route: 048
  9. NITROGLYCERIN. [Concomitant]
     Active Substance: NITROGLYCERIN
     Dosage: UNK
     Dates: start: 20140310, end: 20140310
  10. ATROVENT [Concomitant]
     Active Substance: IPRATROPIUM BROMIDE
     Dosage: UNK UNK, QD, 2 SPRAYS
     Route: 045
  11. VITAMIN D3 [Concomitant]
     Active Substance: CHOLECALCIFEROL
     Dosage: 1 DF, QD
     Route: 048
  12. ONDANSETRON HCL [Concomitant]
     Active Substance: ONDANSETRON HYDROCHLORIDE
     Dosage: 4 MG, ONE TIME DOSE
     Route: 042
     Dates: start: 20140310, end: 20140310
  13. ALTACE [Concomitant]
     Active Substance: RAMIPRIL
     Dosage: 5 MG, BID
     Route: 048
  14. OXYGEN. [Concomitant]
     Active Substance: OXYGEN
     Dosage: O2 OF 98 ON RA
  15. PROLIA [Suspect]
     Active Substance: DENOSUMAB
     Indication: OSTEOPOROSIS
     Dosage: 60 MG/ML, Q6MO
     Route: 058
     Dates: start: 20121218, end: 20140127
  16. AMOXICILLIN. [Concomitant]
     Active Substance: AMOXICILLIN
     Indication: PROPHYLAXIS
     Dosage: 2 G, UNK

REACTIONS (4)
  - Abdominal tenderness [Unknown]
  - Death [Fatal]
  - Acute myocardial infarction [Unknown]
  - Purpura senile [Unknown]

NARRATIVE: CASE EVENT DATE: 20140310
